FAERS Safety Report 14600849 (Version 1)
Quarter: 2018Q1

REPORT INFORMATION
  Report Type: Spontaneous
  Country: BE (occurrence: BE)
  Receive Date: 20180305
  Receipt Date: 20180305
  Transmission Date: 20180509
  Serious: Yes (Congenital Anomaly)
  Sender: FDA-Public Use
  Company Number: BE-TAKEDA-2018TUS005239

PATIENT
  Age: 3 Week
  Sex: Male
  Weight: 3.31 kg

DRUGS (2)
  1. ENTYVIO [Suspect]
     Active Substance: VEDOLIZUMAB
     Indication: CROHN^S DISEASE
     Dosage: 300 MG, UNK
     Route: 063
     Dates: start: 20160414
  2. ENTYVIO [Suspect]
     Active Substance: VEDOLIZUMAB
     Dosage: 300 MG, Q4WEEKS
     Route: 063
     Dates: start: 20160531, end: 20160901

REACTIONS (2)
  - Maternal exposure during breast feeding [Unknown]
  - Congenital megacolon [Unknown]
